FAERS Safety Report 9723746 (Version 1)
Quarter: 2013Q4

REPORT INFORMATION
  Report Type: Report from Study
  Country: CA (occurrence: CA)
  Receive Date: 20131202
  Receipt Date: 20131202
  Transmission Date: 20140711
  Serious: Yes (Other)
  Sender: FDA-Public Use
  Company Number: PHHY2013CA139636

PATIENT
  Age: 67 Year
  Sex: Female

DRUGS (2)
  1. ACLASTA [Suspect]
     Indication: OSTEOPOROSIS
     Dosage: UNK UKN, UNK
     Route: 042
     Dates: start: 20130208
  2. PREDNISONE [Concomitant]
     Dosage: 25 MG, DAILY
     Dates: start: 20130227

REACTIONS (20)
  - Weight decreased [Unknown]
  - Movement disorder [Unknown]
  - Dysstasia [Unknown]
  - Condition aggravated [Unknown]
  - Decreased appetite [Unknown]
  - Torticollis [Unknown]
  - Spinal pain [Unknown]
  - Confusional state [Unknown]
  - Fall [Unknown]
  - Contusion [Unknown]
  - Excoriation [Unknown]
  - Arthropathy [Unknown]
  - Hypoaesthesia [Unknown]
  - Arthralgia [Unknown]
  - Back pain [Unknown]
  - Pelvic pain [Unknown]
  - Musculoskeletal stiffness [Unknown]
  - Malaise [Unknown]
  - Asthenia [Unknown]
  - Nausea [Unknown]
